FAERS Safety Report 17182606 (Version 1)
Quarter: 2019Q4

REPORT INFORMATION
  Report Type: Spontaneous
  Country: RO (occurrence: RO)
  Receive Date: 20191220
  Receipt Date: 20191220
  Transmission Date: 20200122
  Serious: Yes (Other)
  Sender: FDA-Public Use
  Company Number: RO-SUN PHARMACEUTICAL INDUSTRIES LTD-2019R1-231100

PATIENT
  Age: 2 Month
  Sex: Male

DRUGS (1)
  1. ACETAMINOPHEN. [Suspect]
     Active Substance: ACETAMINOPHEN
     Indication: PYREXIA
     Dosage: UNK
     Route: 048

REACTIONS (9)
  - Anaemia [Recovered/Resolved]
  - Acute hepatic failure [Recovered/Resolved]
  - Haematemesis [Recovered/Resolved]
  - Hepatomegaly [Recovered/Resolved]
  - Hypoglycaemia [Recovered/Resolved]
  - Melaena [Recovered/Resolved]
  - Hypoalbuminaemia [Recovered/Resolved]
  - Coagulopathy [Recovered/Resolved]
  - Abdominal distension [Recovered/Resolved]
